FAERS Safety Report 16740207 (Version 2)
Quarter: 2019Q3

REPORT INFORMATION
  Report Type: Spontaneous
  Country: US (occurrence: US)
  Receive Date: 20190826
  Receipt Date: 20190906
  Transmission Date: 20191005
  Serious: No
  Sender: FDA-Public Use
  Company Number: US-ENDO PHARMACEUTICALS INC-2019-104670

PATIENT
  Sex: Male

DRUGS (4)
  1. OXYCODONE HYDROCHLORIDE, ACETAMINOPHEN [Suspect]
     Active Substance: ACETAMINOPHEN\OXYCODONE HYDROCHLORIDE
     Indication: BREAKTHROUGH PAIN
     Dosage: UNK UNKNOWN, UNKNOWN
     Route: 048
     Dates: start: 2017
  2. NAPROXEN. [Concomitant]
     Active Substance: NAPROXEN
     Indication: PRODUCT USED FOR UNKNOWN INDICATION
  3. LEXAPRO [Concomitant]
     Active Substance: ESCITALOPRAM OXALATE
     Indication: PRODUCT USED FOR UNKNOWN INDICATION
  4. OXYCODONE HYDROCHLORIDE, ACETAMINOPHEN [Suspect]
     Active Substance: ACETAMINOPHEN\OXYCODONE HYDROCHLORIDE
     Indication: BREAKTHROUGH PAIN
     Dosage: UNK UNKNOWN, UNKNOWN
     Route: 048

REACTIONS (3)
  - Feeling abnormal [Unknown]
  - Drug ineffective [Not Recovered/Not Resolved]
  - Constipation [Unknown]

NARRATIVE: CASE EVENT DATE: 2017
